FAERS Safety Report 6992287-6 (Version None)
Quarter: 2010Q3

REPORT INFORMATION
  Report Type: 
  Country: None (occurrence: None)
  Receive Date: 20100917
  Receipt Date: 20100907
  Transmission Date: 20110219
  Serious: Yes (Other)
  Sender: FDA-Public Use
  Company Number: US-PFIZER INC-2010113730

PATIENT
  Sex: Male
  Weight: 81.63 kg

DRUGS (10)
  1. NEURONTIN [Suspect]
     Indication: NEUROMA
     Dosage: 600 MG, 4X/DAY
     Route: 048
     Dates: start: 19970101
  2. NEURONTIN [Suspect]
     Indication: NERVE INJURY
  3. LYRICA [Suspect]
     Indication: NEUROMA
     Dosage: UNK
     Dates: start: 20060101, end: 20060101
  4. TRIAVIL [Concomitant]
     Dosage: UNK
  5. DESYREL [Concomitant]
     Dosage: UNK
  6. ELAVIL [Concomitant]
     Dosage: UNK
  7. DILANTIN [Concomitant]
     Dosage: UNK
  8. TEGRETOL [Concomitant]
     Dosage: UNK
  9. ADVIL LIQUI-GELS [Concomitant]
     Dosage: UNK
  10. ACETYLSALICYLIC ACID [Concomitant]
     Dosage: UNK

REACTIONS (6)
  - ARTHRITIS [None]
  - DRUG INEFFECTIVE [None]
  - MACULAR DEGENERATION [None]
  - MORTON'S NEUROMA [None]
  - NEUROPATHY PERIPHERAL [None]
  - PAIN [None]
